FAERS Safety Report 6818790-7 (Version None)
Quarter: 2010Q3

REPORT INFORMATION
  Report Type: 
  Country: None (occurrence: None)
  Receive Date: 20100701
  Receipt Date: 20100622
  Transmission Date: 20110219
  Serious: Yes (Hospitalization)
  Sender: FDA-Public Use
  Company Number: 2010SP035690

PATIENT

DRUGS (1)
  1. ZEMURON [Suspect]
     Indication: PRODUCT USED FOR UNKNOWN INDICATION
     Dosage: ; IV
     Route: 042
     Dates: start: 20100622, end: 20100622

REACTIONS (1)
  - EXTRAVASATION [None]
